FAERS Safety Report 7190531-6 (Version None)
Quarter: 2010Q4

REPORT INFORMATION
  Report Type: 
  Country: None (occurrence: None)
  Receive Date: 20101221
  Receipt Date: 20101221
  Transmission Date: 20110411
  Serious: Yes (Life-Threatening, Hospitalization)
  Sender: FDA-Public Use
  Company Number: None

PATIENT
  Age: 65 Year
  Sex: Male
  Weight: 128.8216 kg

DRUGS (2)
  1. DARVOCET-N 100 [Suspect]
     Indication: PROCEDURAL PAIN
     Dosage: 1 Q 4-6 HOURS PO
     Route: 048
     Dates: start: 20100503, end: 20100505
  2. DARVOCET-N 100 [Suspect]
     Indication: PROCEDURAL PAIN
     Dosage: 1 Q 4-6 HOURS PO
     Route: 048
     Dates: start: 20100713, end: 20100718

REACTIONS (1)
  - HEART RATE IRREGULAR [None]
